FAERS Safety Report 5916982-2 (Version None)
Quarter: 2008Q4

REPORT INFORMATION
  Report Type: 
  Country: None (occurrence: None)
  Receive Date: 20081013
  Receipt Date: 20080929
  Transmission Date: 20090506
  Serious: Yes (Death)
  Sender: FDA-Public Use
  Company Number: GB-GENENTECH-269513

PATIENT
  Age: 32 Year
  Sex: Male

DRUGS (5)
  1. MABTHERA [Suspect]
     Indication: CASTLEMAN'S DISEASE
     Dosage: 375 MG/M2, 1/WEEK
  2. GANCICLOVIR [Suspect]
     Indication: DRUG USE FOR UNKNOWN INDICATION
     Dosage: 5 MG/KG, BID
  3. KALETRA [Concomitant]
     Indication: DRUG USE FOR UNKNOWN INDICATION
     Dosage: 1 UNK, QD
  4. VINCRISTINE [Concomitant]
     Indication: DRUG USE FOR UNKNOWN INDICATION
     Dosage: 0.5 MG, QD
  5. DEXAMETHASONE [Concomitant]
     Indication: DRUG USE FOR UNKNOWN INDICATION
     Dosage: 16 MG, QD

REACTIONS (2)
  - CASTLEMAN'S DISEASE [None]
  - MULTI-ORGAN FAILURE [None]
